FAERS Safety Report 5773909-4 (Version None)
Quarter: 2008Q2

REPORT INFORMATION
  Report Type: 
  Country: None (occurrence: None)
  Receive Date: 20080616
  Receipt Date: 20080606
  Transmission Date: 20081010
  Serious: Yes (Other)
  Sender: FDA-Public Use
  Company Number: B0522353A

PATIENT
  Age: 46 Year
  Sex: Female
  Weight: 55 kg

DRUGS (2)
  1. LAPATINIB [Suspect]
     Dosage: 1250MG PER DAY
     Route: 048
     Dates: start: 20080429
  2. CAPECITABINE [Suspect]
     Dosage: 2000MG PER DAY
     Route: 048
     Dates: start: 20080429

REACTIONS (2)
  - EYELID OEDEMA [None]
  - RASH [None]
